FAERS Safety Report 11550197 (Version 1)
Quarter: 2015Q3

REPORT INFORMATION
  Report Type: Spontaneous
  Country: US (occurrence: US)
  Receive Date: 20150924
  Receipt Date: 20150924
  Transmission Date: 20151125
  Serious: No
  Sender: FDA-Public Use
  Company Number: US-ACTELION PHARMACEUTICALS US, INC.-A-US2015-119419

PATIENT
  Age: 62 Year
  Sex: Female

DRUGS (5)
  1. TRACLEER [Suspect]
     Active Substance: BOSENTAN
     Indication: PULMONARY ARTERIAL HYPERTENSION
     Dosage: UNK
     Route: 048
  2. RIOCIGUAT [Concomitant]
     Active Substance: RIOCIGUAT
  3. PRADAXA [Suspect]
     Active Substance: DABIGATRAN ETEXILATE MESYLATE
     Indication: PRODUCT USED FOR UNKNOWN INDICATION
     Route: 065
  4. TEMAZEPAM. [Suspect]
     Active Substance: TEMAZEPAM
     Indication: PRODUCT USED FOR UNKNOWN INDICATION
     Route: 065
  5. TREPROSTINIL DIOLAMIN [Concomitant]
     Active Substance: TREPROSTINIL DIOLAMINE

REACTIONS (9)
  - Oropharyngeal pain [Unknown]
  - Upper respiratory tract infection [Unknown]
  - Cough [Unknown]
  - Secretion discharge [Unknown]
  - Pain in jaw [Unknown]
  - Influenza [Unknown]
  - Accidental overdose [Unknown]
  - Haemoptysis [Unknown]
  - Epistaxis [Unknown]
